FAERS Safety Report 19941660 (Version 1)
Quarter: 2021Q4

REPORT INFORMATION
  Report Type: Spontaneous
  Country: US (occurrence: US)
  Receive Date: 20211008
  Receipt Date: 20211008
  Transmission Date: 20220303
  Serious: Yes (Other)
  Sender: FDA-Public Use
  Company Number: None

PATIENT
  Age: 62 Year
  Sex: Female
  Weight: 61.7 kg

DRUGS (2)
  1. REGEN-COV [Suspect]
     Active Substance: CASIRIVIMAB\IMDEVIMAB
     Indication: COVID-19
     Dates: start: 20211008, end: 20211008
  2. UNSPECIFIED INGREDIENT [Concomitant]
     Active Substance: UNSPECIFIED INGREDIENT
     Dates: start: 20211008, end: 20211008

REACTIONS (6)
  - Chest pain [None]
  - Pain [None]
  - Musculoskeletal pain [None]
  - Hypoaesthesia [None]
  - Blood pressure increased [None]
  - Paraesthesia [None]

NARRATIVE: CASE EVENT DATE: 20211008
